FAERS Safety Report 19605460 (Version 1)
Quarter: 2021Q3

REPORT INFORMATION
  Report Type: Spontaneous
  Country: US (occurrence: US)
  Receive Date: 20210723
  Receipt Date: 20210723
  Transmission Date: 20211014
  Serious: No
  Sender: FDA-Public Use
  Company Number: US-SA-2021SA237391

PATIENT
  Age: 63 Year
  Sex: Female

DRUGS (1)
  1. LANTUS SOLOSTAR [Suspect]
     Active Substance: INSULIN GLARGINE
     Indication: DIABETES MELLITUS
     Dosage: 10 IU, QD (2 WEEKS AGO)
     Route: 065
     Dates: start: 2021

REACTIONS (2)
  - Pruritus [Unknown]
  - Amnesia [Unknown]

NARRATIVE: CASE EVENT DATE: 2021
